FAERS Safety Report 6583761-5 (Version None)
Quarter: 2010Q1

REPORT INFORMATION
  Report Type: 
  Country: None (occurrence: None)
  Receive Date: 20100213
  Receipt Date: 20100213
  Transmission Date: 20100710
  Serious: Yes (Other)
  Sender: FDA-Public Use
  Company Number: None

PATIENT
  Age: 24 Year
  Sex: Male
  Weight: 65.7716 kg

DRUGS (4)
  1. SINGULAIR [Suspect]
     Indication: ASTHMA
     Dosage: 10 MG ONCE PER DAY PO
     Route: 048
     Dates: start: 20000101, end: 20051201
  2. SINGULAIR [Suspect]
     Indication: MULTIPLE ALLERGIES
     Dosage: 10 MG ONCE PER DAY PO
     Route: 048
     Dates: start: 20000101, end: 20051201
  3. SINGULAIR [Suspect]
     Indication: ASTHMA
     Dosage: 10 MG ONCE PER DAY PO
     Route: 048
     Dates: start: 20090701, end: 20100210
  4. SINGULAIR [Suspect]
     Indication: MULTIPLE ALLERGIES
     Dosage: 10 MG ONCE PER DAY PO
     Route: 048
     Dates: start: 20090701, end: 20100210

REACTIONS (3)
  - HYPOAESTHESIA [None]
  - PARAESTHESIA [None]
  - THERAPEUTIC RESPONSE UNEXPECTED [None]
